FAERS Safety Report 15938839 (Version 1)
Quarter: 2019Q1

REPORT INFORMATION
  Report Type: Spontaneous
  Country: US (occurrence: US)
  Receive Date: 20190208
  Receipt Date: 20190208
  Transmission Date: 20190417
  Serious: No
  Sender: FDA-Public Use
  Company Number: US-ROCHE-2226390

PATIENT
  Sex: Female
  Weight: 61.29 kg

DRUGS (6)
  1. ALLEGRA [Concomitant]
     Active Substance: FEXOFENADINE HYDROCHLORIDE
     Dosage: ONGOING: UNKNOWN
     Route: 048
     Dates: start: 20180530
  2. XOLAIR [Suspect]
     Active Substance: OMALIZUMAB
     Indication: URTICARIA
     Dosage: 150 MG SDV, INJECTED
     Route: 058
     Dates: start: 20180601, end: 20180913
  3. FLUZONE HIGH-DOSE NOS [Concomitant]
     Active Substance: INFLUENZA A VIRUS A/CALIFORNIA/7/2009 X-179A (H1N1) ANTIGEN (FORMALDEHYDE INACTIVATED)\INFLUENZA A VIRUS A/VICTORIA/210/2009 X-187 (H3N2) ANTIGEN (FORMALDEHYDE INACTIVATED)\INFLUENZA B VIRUS B/BRISBANE/60/2008 ANTIGEN (FORMALDEHYDE INACTIVATED)
     Dosage: ONGOING: UNKNOWN
     Route: 030
     Dates: start: 20180530
  4. HYDROCHLORIC ACID [Concomitant]
     Active Substance: HYDROCHLORIC ACID
     Dosage: ONGOING: UNKNOWN
     Route: 065
     Dates: start: 20180530
  5. XOLAIR [Suspect]
     Active Substance: OMALIZUMAB
     Dosage: ONGOING: UNKNOWN
     Route: 058
     Dates: start: 20180518
  6. HYDROXYZINE [Concomitant]
     Active Substance: HYDROXYZINE HYDROCHLORIDE
     Dosage: ONGOING: UNKNOWN
     Route: 048
     Dates: start: 20180530

REACTIONS (3)
  - Nausea [Unknown]
  - Rash [Unknown]
  - Vomiting [Recovered/Resolved]
